FAERS Safety Report 12838163 (Version 1)
Quarter: 2016Q4

REPORT INFORMATION
  Report Type: Spontaneous
  Country: US (occurrence: US)
  Receive Date: 20161012
  Receipt Date: 20161012
  Transmission Date: 20170207
  Serious: Yes (Other)
  Sender: FDA-Public Use
  Company Number: US-AMGEN-USASP2016137102

PATIENT
  Age: 72 Year
  Sex: Female

DRUGS (4)
  1. MOBIC [Concomitant]
     Active Substance: MELOXICAM
  2. TRAMADOL. [Concomitant]
     Active Substance: TRAMADOL
  3. WARFARIN [Concomitant]
     Active Substance: WARFARIN
  4. PROLIA [Suspect]
     Active Substance: DENOSUMAB
     Indication: OSTEOPOROSIS
     Dosage: 60 MG, Q6MO
     Route: 065
     Dates: start: 20160107

REACTIONS (8)
  - Mobility decreased [Unknown]
  - Back disorder [Not Recovered/Not Resolved]
  - Dysstasia [Unknown]
  - Pain [Not Recovered/Not Resolved]
  - Bone density abnormal [Unknown]
  - Back pain [Not Recovered/Not Resolved]
  - Road traffic accident [Unknown]
  - Abasia [Unknown]

NARRATIVE: CASE EVENT DATE: 2016
